FAERS Safety Report 26114814 (Version 1)
Quarter: 2025Q4

REPORT INFORMATION
  Report Type: Spontaneous
  Country: EU (occurrence: EU)
  Receive Date: 20251203
  Receipt Date: 20251203
  Transmission Date: 20260118
  Serious: Yes (Hospitalization, Other)
  Sender: AMGEN
  Company Number: EU-AMGEN-ROUSP2025233911

PATIENT
  Age: 60 Year
  Sex: Female

DRUGS (5)
  1. VECTIBIX [Suspect]
     Active Substance: PANITUMUMAB
     Indication: Adenocarcinoma of colon
     Dosage: UNK
     Route: 065
     Dates: start: 202308
  2. LEUCOVORIN [Suspect]
     Active Substance: LEUCOVORIN\LEUCOVORIN CALCIUM
     Indication: Endometrial adenocarcinoma
     Dosage: UNK
     Route: 065
     Dates: start: 202308
  3. FLUOROURACIL [Suspect]
     Active Substance: FLUOROURACIL
     Indication: Endometrial adenocarcinoma
     Dosage: UNK
     Route: 065
     Dates: start: 202308
  4. OXALIPLATIN [Suspect]
     Active Substance: OXALIPLATIN
     Indication: Endometrial adenocarcinoma
     Dosage: UNK
     Route: 065
     Dates: start: 202308
  5. DOXYCYCLINE [Concomitant]
     Active Substance: DOXYCYCLINE
     Indication: Prophylaxis

REACTIONS (6)
  - Thrombocytopenia [Unknown]
  - Normochromic normocytic anaemia [Unknown]
  - Myelosuppression [Unknown]
  - Adenocarcinoma of colon [Unknown]
  - Therapeutic response delayed [Unknown]
  - Skin toxicity [Unknown]
